FAERS Safety Report 20554939 (Version 2)
Quarter: 2023Q4

REPORT INFORMATION
  Report Type: Report from Study
  Country: US (occurrence: US)
  Receive Date: 20220304
  Receipt Date: 20231128
  Transmission Date: 20240109
  Serious: Yes (Hospitalization)
  Sender: FDA-Public Use
  Company Number: US-PFIZER INC-202200179173

PATIENT
  Sex: Male
  Weight: 2.87 kg

DRUGS (2)
  1. INVESTIGATIONAL PRODUCT [Suspect]
     Active Substance: INVESTIGATIONAL PRODUCT
     Indication: Immunisation
     Dosage: DOSE 1, 120 UG SINGLE
     Route: 050
     Dates: start: 20211109, end: 20211109
  2. MAGNESIUM SULFATE [Suspect]
     Active Substance: MAGNESIUM SULFATE\MAGNESIUM SULFATE HEPTAHYDRATE
     Indication: Gestational hypertension
     Dosage: 2 G/HR
     Route: 042
     Dates: start: 20220109, end: 20220109

REACTIONS (2)
  - Maternal exposure during pregnancy [Recovered/Resolved]
  - Neonatal respiratory distress [Recovered/Resolved]

NARRATIVE: CASE EVENT DATE: 20211109
